FAERS Safety Report 23632063 (Version 1)
Quarter: 2024Q1

REPORT INFORMATION
  Report Type: Spontaneous
  Country: US (occurrence: US)
  Receive Date: 20240314
  Receipt Date: 20240314
  Transmission Date: 20240410
  Serious: No
  Sender: FDA-Public Use
  Company Number: US-BAYER-2024A031517

PATIENT
  Age: 51 Year
  Sex: Female

DRUGS (1)
  1. CLIMARA PRO [Suspect]
     Active Substance: ESTRADIOL\LEVONORGESTREL
     Indication: Menopause
     Dosage: 0.045/0.015
     Route: 059
     Dates: start: 20240216

REACTIONS (3)
  - Device adhesion issue [None]
  - Back pain [Recovered/Resolved]
  - Off label use [None]

NARRATIVE: CASE EVENT DATE: 20240216
